FAERS Safety Report 21018397 (Version 2)
Quarter: 2022Q3

REPORT INFORMATION
  Report Type: Report from Study
  Country: US (occurrence: US)
  Receive Date: 20220628
  Receipt Date: 20220719
  Transmission Date: 20221027
  Serious: Yes (Hospitalization, Other)
  Sender: FDA-Public Use
  Company Number: US-NOVARTISPH-NVSC2022US095227

PATIENT
  Age: 53 Year
  Sex: Male

DRUGS (2)
  1. ENTRESTO [Suspect]
     Active Substance: SACUBITRIL\VALSARTAN
     Indication: Cardiac failure chronic
     Dosage: 1 DOSAGE FORM, BID (24/26MG), (1/2 TABLET 24/26MG)
     Route: 065
     Dates: start: 202109
  2. LEVOTHYROXINE [Concomitant]
     Active Substance: LEVOTHYROXINE
     Indication: Product used for unknown indication
     Dosage: UNK
     Route: 065
     Dates: start: 2022

REACTIONS (10)
  - Cardiac arrest [Unknown]
  - Atrial fibrillation [Unknown]
  - Hyperthyroidism [Unknown]
  - Dysphonia [Unknown]
  - Speech disorder [Unknown]
  - Weight increased [Unknown]
  - Sinus disorder [Unknown]
  - Blood thyroid stimulating hormone increased [Unknown]
  - Hypersensitivity [Unknown]
  - Incorrect dose administered [Unknown]

NARRATIVE: CASE EVENT DATE: 20211201
